FAERS Safety Report 5686652-7 (Version None)
Quarter: 2008Q1

REPORT INFORMATION
  Report Type: 
  Country: None (occurrence: None)
  Receive Date: 20080328
  Receipt Date: 20070810
  Transmission Date: 20080703
  Serious: No
  Sender: FDA-Public Use
  Company Number: US-BAYER-US-2007-022672

PATIENT
  Age: 22 Year
  Sex: Female

DRUGS (2)
  1. MIRENA [Suspect]
     Route: 015
     Dates: start: 20070404
  2. RITALIN [Concomitant]
     Dates: start: 20070501, end: 20070601

REACTIONS (2)
  - DRUG EXPOSURE DURING PREGNANCY [None]
  - MEDICATION ERROR [None]
